FAERS Safety Report 10422974 (Version 2)
Quarter: 2014Q4

REPORT INFORMATION
  Report Type: Spontaneous
  Country: US (occurrence: None)
  Receive Date: 20140722
  Receipt Date: 20141121
  Transmission Date: 20150528
  Serious: No
  Sender: FDA-Public Use
  Company Number: 163-10004-14055267

PATIENT
  Sex: Male
  Weight: 70.76 kg

DRUGS (8)
  1. METHOTREXATE (METHOTREXATE) [Concomitant]
     Active Substance: METHOTREXATE
  2. MELOXICAM (MELOXICAM) [Concomitant]
     Active Substance: MELOXICAM
  3. FOLIC ACID (FOLIC ACID) [Concomitant]
     Active Substance: FOLIC ACID
  4. OTEZLA [Suspect]
     Active Substance: APREMILAST
     Indication: PSORIATIC ARTHROPATHY
     Route: 048
     Dates: start: 20140429
  5. LISINOPRIL (LISINOPRIL) [Concomitant]
     Active Substance: LISINOPRIL
  6. PANTOPRAZOLE (PANTOPRAZOLE) [Concomitant]
     Active Substance: PANTOPRAZOLE SODIUM
  7. HYDROCODONE/ACETAMINOPHEN (REMEDEINE) [Concomitant]
  8. SULFAZINE (SULFASALAZINE) [Concomitant]

REACTIONS (1)
  - Nausea [None]
